FAERS Safety Report 11718340 (Version 1)
Quarter: 2015Q4

REPORT INFORMATION
  Report Type: Spontaneous
  Country: US (occurrence: US)
  Receive Date: 20151110
  Receipt Date: 20151110
  Transmission Date: 20160304
  Serious: No
  Sender: FDA-Public Use
  Company Number: US-BAYER-2015-464442

PATIENT
  Age: 77 Year
  Sex: Female
  Weight: 63.49 kg

DRUGS (1)
  1. MIRALAX [Suspect]
     Active Substance: POLYETHYLENE GLYCOL 3350
     Dosage: 1 DF, PRN
     Route: 048
     Dates: start: 2010

REACTIONS (1)
  - Product use issue [None]

NARRATIVE: CASE EVENT DATE: 201511
